FAERS Safety Report 20882139 (Version 7)
Quarter: 2022Q3

REPORT INFORMATION
  Report Type: Report from Study
  Country: NL (occurrence: NL)
  Receive Date: 20220527
  Receipt Date: 20220802
  Transmission Date: 20221026
  Serious: Yes (Hospitalization)
  Sender: FDA-Public Use
  Company Number: NL-ABBVIE-22K-114-4412571-00

PATIENT
  Sex: Male

DRUGS (4)
  1. CARBIDOPA\LEVODOPA [Suspect]
     Active Substance: CARBIDOPA\LEVODOPA
     Indication: Parkinson^s disease
     Route: 050
     Dates: start: 20200127
  2. CARBIDOPA\LEVODOPA [Suspect]
     Active Substance: CARBIDOPA\LEVODOPA
     Dosage: MD 11.0 ML; CD 3.7 ML/H; ED 3.0 ML
     Route: 050
  3. BENSERAZIDE HYDROCHLORIDE\LEVODOPA [Concomitant]
     Active Substance: BENSERAZIDE HYDROCHLORIDE\LEVODOPA
     Indication: Parkinson^s disease
     Dosage: AT 22:00
     Route: 048
     Dates: start: 20050101
  4. ROPINIROLE [Concomitant]
     Active Substance: ROPINIROLE
     Indication: Parkinson^s disease
     Dosage: AT 22:00
     Dates: start: 20150101

REACTIONS (12)
  - COVID-19 [Recovered/Resolved]
  - Device dislocation [Unknown]
  - Pneumonia [Not Recovered/Not Resolved]
  - Device issue [Recovered/Resolved]
  - Device issue [Unknown]
  - Haematuria [Unknown]
  - Normocytic anaemia [Unknown]
  - Coronary artery disease [Recovered/Resolved]
  - Restlessness [Unknown]
  - Urinary tract infection [Unknown]
  - Stoma site erythema [Not Recovered/Not Resolved]
  - Stoma site odour [Not Recovered/Not Resolved]

NARRATIVE: CASE EVENT DATE: 20220101
